FAERS Safety Report 15344595 (Version 2)
Quarter: 2019Q1

REPORT INFORMATION
  Report Type: Spontaneous
  Country: US (occurrence: US)
  Receive Date: 20180903
  Receipt Date: 20190212
  Transmission Date: 20190417
  Serious: No
  Sender: FDA-Public Use
  Company Number: US-SA-2018SA244494

PATIENT
  Age: 53 Year
  Sex: Male

DRUGS (1)
  1. DUPIXENT [Suspect]
     Active Substance: DUPILUMAB
     Indication: DERMATITIS ATOPIC
     Dosage: UNK
     Route: 058

REACTIONS (4)
  - Product use issue [Unknown]
  - Dermatitis [Unknown]
  - Injection site mass [Unknown]
  - Injection site pain [Unknown]

NARRATIVE: CASE EVENT DATE: 2018
